FAERS Safety Report 12745436 (Version 1)
Quarter: 2016Q3

REPORT INFORMATION
  Report Type: Spontaneous
  Country: US (occurrence: US)
  Receive Date: 20160914
  Receipt Date: 20160914
  Transmission Date: 20161109
  Serious: Yes (Disabling)
  Sender: FDA-Public Use
  Company Number: None

PATIENT
  Age: 41 Year
  Sex: Female
  Weight: 56.25 kg

DRUGS (7)
  1. ADVIL [Concomitant]
     Active Substance: IBUPROFEN
  2. VITAMIN D3 [Concomitant]
     Active Substance: CHOLECALCIFEROL
  3. VITAMIN B COMPLEX [Concomitant]
     Active Substance: CYANOCOBALAMIN\DEXPANTHENOL\NIACINAMIDE\PYRIDOXINE HYDROCHLORIDE\RIBOFLAVIN 5^-PHOSPHATE SODIUM\THIAMINE HYDROCHLORIDE\VITAMIN B COMPLEX
  4. MG [Concomitant]
     Active Substance: MAGNESIUM
  5. IMIQUIMOD. [Suspect]
     Active Substance: IMIQUIMOD
     Indication: ANOGENITAL WARTS
     Dosage: OTHER STRENGTH:;OTHER DOSE:.25;OTHER FREQUENCY:3X/WEEK;OTHER ROUTE:
     Route: 061
     Dates: start: 20160908, end: 20160910
  6. ADAPTOGENS [Concomitant]
  7. MULTI VITAMIN [Concomitant]
     Active Substance: VITAMINS

REACTIONS (10)
  - Lymphadenopathy [None]
  - Eye irritation [None]
  - Fatigue [None]
  - Myalgia [None]
  - Nausea [None]
  - Dry eye [None]
  - Headache [None]
  - Sleep disorder [None]
  - Night sweats [None]
  - Tremor [None]

NARRATIVE: CASE EVENT DATE: 20160909
